FAERS Safety Report 5881051-7 (Version None)
Quarter: 2008Q3

REPORT INFORMATION
  Report Type: 
  Country: None (occurrence: None)
  Receive Date: 20080912
  Receipt Date: 20080617
  Transmission Date: 20090109
  Serious: No
  Sender: FDA-Public Use
  Company Number: US-ABBOTT-08P-163-0458339-00

PATIENT
  Sex: Female
  Weight: 80.812 kg

DRUGS (6)
  1. HUMIRA [Suspect]
     Indication: RHEUMATOID ARTHRITIS
     Route: 050
     Dates: start: 20050101, end: 20070101
  2. LEFLUNOMIDE [Concomitant]
     Indication: RHEUMATOID ARTHRITIS
     Dosage: 10 MG DAILY
     Route: 048
     Dates: start: 20071201
  3. FOLIC ACID [Concomitant]
     Indication: DRUG USE FOR UNKNOWN INDICATION
     Route: 048
     Dates: start: 20070101
  4. CALCIUM-SANDOZ [Concomitant]
     Indication: PARATHYROID DISORDER
     Dosage: 600 DOSAGE FORMS, 4 TABLETS A DAY
     Route: 048
     Dates: start: 20080501
  5. TOCOPHERYL ACETATE [Concomitant]
     Indication: PARATHYROID DISORDER
     Dosage: 1 CAPSULE A WEEK
     Dates: start: 20080501
  6. ALENDRONATE SODIUM [Concomitant]
     Indication: DRUG USE FOR UNKNOWN INDICATION
     Dosage: 70 MCG A WEEK

REACTIONS (2)
  - DRUG INEFFECTIVE [None]
  - SYNOVITIS [None]
